FAERS Safety Report 20010804 (Version 1)
Quarter: 2021Q4

REPORT INFORMATION
  Report Type: Spontaneous
  Country: US (occurrence: US)
  Receive Date: 20211029
  Receipt Date: 20211029
  Transmission Date: 20220303
  Serious: Yes (Other)
  Sender: FDA-Public Use
  Company Number: US-GLAXOSMITHKLINE-US2021GSK223793

PATIENT
  Sex: Female

DRUGS (4)
  1. ZANTAC [Suspect]
     Active Substance: RANITIDINE HYDROCHLORIDE
     Indication: Gastrooesophageal reflux disease
     Dosage: UNK, APPROX 2-3 TIMES PER DAY AS NEEDED
     Route: 065
     Dates: start: 199001, end: 201906
  2. ZANTAC [Suspect]
     Active Substance: RANITIDINE HYDROCHLORIDE
     Indication: Gastrooesophageal reflux disease
     Dosage: UNK, APPROX 2-3 TIMES PER DAY AS NEEDED
     Route: 065
     Dates: start: 199001, end: 201906
  3. RANITIDINE HYDROCHLORIDE [Suspect]
     Active Substance: RANITIDINE HYDROCHLORIDE
     Indication: Gastrooesophageal reflux disease
     Dosage: UNK, APPROX 2-3 TIMES PER DAY AS NEEDED
     Route: 065
     Dates: start: 199701, end: 201906
  4. RANITIDINE HYDROCHLORIDE [Suspect]
     Active Substance: RANITIDINE HYDROCHLORIDE
     Indication: Gastrooesophageal reflux disease
     Dosage: UNK, APPROX 2-3 TIMES PER DAY AS NEEDED
     Route: 065
     Dates: start: 199701, end: 201906

REACTIONS (1)
  - Oesophageal carcinoma [Unknown]
